FAERS Safety Report 9315206 (Version 6)
Quarter: 2013Q3

REPORT INFORMATION
  Report Type: Report from Study
  Country: US (occurrence: US)
  Receive Date: 20130529
  Receipt Date: 20130726
  Transmission Date: 20140515
  Serious: Yes (Hospitalization)
  Sender: FDA-Public Use
  Company Number: US-JNJFOC-20130516556

PATIENT
  Age: 16 Year
  Sex: Male
  Weight: 35.1 kg

DRUGS (21)
  1. REMICADE [Suspect]
     Indication: CROHN^S DISEASE
     Route: 042
     Dates: start: 20091027
  2. LOPERAMIDE [Suspect]
     Indication: PRODUCT USED FOR UNKNOWN INDICATION
     Route: 065
  3. AZATHIOPRINE [Concomitant]
     Route: 065
  4. CALCIUM AND VITAMIN D [Concomitant]
     Route: 065
  5. 5-ASA [Concomitant]
     Route: 048
  6. ALL OTHER THERAPEUTIC PRODUCTS [Concomitant]
     Route: 065
  7. ANTIBIOTICS FOR IBD [Concomitant]
     Route: 065
  8. PREDNISONE [Concomitant]
     Route: 065
  9. METHOTREXATE [Concomitant]
     Route: 065
  10. HYDROCORTISONE [Concomitant]
     Route: 065
  11. GENTAMICIN [Concomitant]
     Route: 065
  12. FLAGYL [Concomitant]
     Route: 065
  13. AMPICILLIN [Concomitant]
     Route: 065
  14. MIRALAX [Concomitant]
     Route: 065
  15. NEOMYCIN [Concomitant]
     Route: 065
  16. CYPROHEPTADINE [Concomitant]
     Route: 065
  17. RANITIDINE [Concomitant]
     Route: 065
  18. FOLIC ACID [Concomitant]
     Route: 065
  19. PREVACID [Concomitant]
     Route: 065
  20. OMEPRAZOLE [Concomitant]
     Route: 065
  21. ZOFRAN [Concomitant]
     Route: 065

REACTIONS (2)
  - Crohn^s disease [Recovered/Resolved with Sequelae]
  - Small intestinal obstruction [Recovered/Resolved]
